FAERS Safety Report 6933195-6 (Version None)
Quarter: 2010Q3

REPORT INFORMATION
  Report Type: 
  Country: None (occurrence: None)
  Receive Date: 20100820
  Receipt Date: 20100810
  Transmission Date: 20110219
  Serious: Yes (Death, Hospitalization)
  Sender: FDA-Public Use
  Company Number: 2007BI001822

PATIENT
  Age: 63 Year
  Sex: Female

DRUGS (3)
  1. AVONEX [Suspect]
     Indication: MULTIPLE SCLEROSIS
     Route: 030
     Dates: start: 20060118
  2. AVONEX [Suspect]
     Route: 030
     Dates: start: 20060118
  3. AVONEX [Suspect]
     Route: 030
     Dates: start: 20060118

REACTIONS (6)
  - ASTHENIA [None]
  - DECUBITUS ULCER [None]
  - DEHYDRATION [None]
  - MALNUTRITION [None]
  - PNEUMONIA [None]
  - URINARY TRACT INFECTION [None]
